FAERS Safety Report 7394055-2 (Version None)
Quarter: 2011Q2

REPORT INFORMATION
  Report Type: 
  Country: None (occurrence: None)
  Receive Date: 20110405
  Receipt Date: 20110326
  Transmission Date: 20111010
  Serious: Yes (Other)
  Sender: FDA-Public Use
  Company Number: IS-BRISTOL-MYERS SQUIBB COMPANY-15650450

PATIENT
  Age: 11 Month
  Sex: Female

DRUGS (2)
  1. CARBOPLATIN [Suspect]
     Indication: NEUROBLASTOMA
  2. CISPLATIN [Suspect]
     Indication: NEUROBLASTOMA

REACTIONS (1)
  - TINNITUS [None]
